FAERS Safety Report 7147967-9 (Version None)
Quarter: 2010Q4

REPORT INFORMATION
  Report Type: 
  Country: None (occurrence: None)
  Receive Date: 20101207
  Receipt Date: 20101207
  Transmission Date: 20110411
  Serious: No
  Sender: FDA-Public Use
  Company Number: None

PATIENT
  Age: 51 Year
  Sex: Female
  Weight: 68.0396 kg

DRUGS (1)
  1. VALACYCLOVIR [Suspect]
     Indication: HERPES SIMPLEX
     Dosage: 1000 MG 2 TIMES DAILY PO
     Route: 048
     Dates: start: 20101203, end: 20101205

REACTIONS (1)
  - TINNITUS [None]
